FAERS Safety Report 6729275-0 (Version None)
Quarter: 2010Q2

REPORT INFORMATION
  Report Type: 
  Country: None (occurrence: None)
  Receive Date: 20100517
  Receipt Date: 20100503
  Transmission Date: 20101027
  Serious: No
  Sender: FDA-Public Use
  Company Number: US-ABBOTT-10P-163-0642143-00

PATIENT
  Sex: Male
  Weight: 79.45 kg

DRUGS (5)
  1. SIMCOR [Suspect]
     Indication: BLOOD CHOLESTEROL INCREASED
     Dosage: UNKNOWN
     Dates: start: 20100401
  2. PRILOSEC [Concomitant]
     Indication: DRUG USE FOR UNKNOWN INDICATION
  3. VITAMIN D [Concomitant]
     Indication: DRUG USE FOR UNKNOWN INDICATION
  4. ZYRTEC [Concomitant]
     Indication: SEASONAL ALLERGY
  5. FISH OIL [Concomitant]
     Indication: DRUG USE FOR UNKNOWN INDICATION
     Dosage: OCCASIONALLY

REACTIONS (4)
  - ABDOMINAL DISCOMFORT [None]
  - ASTHENIA [None]
  - FEELING HOT [None]
  - SLUGGISHNESS [None]
